FAERS Safety Report 6642038-X (Version None)
Quarter: 2010Q1

REPORT INFORMATION
  Report Type: 
  Country: None (occurrence: None)
  Receive Date: 20100316
  Receipt Date: 20100301
  Transmission Date: 20100710
  Serious: Yes (Death)
  Sender: FDA-Public Use
  Company Number: KV201000046

PATIENT
  Age: 38 Year
  Sex: Male
  Weight: 102.5 kg

DRUGS (11)
  1. ISOSORBIDE MONONITRATE [Suspect]
     Indication: CHEST PAIN
     Dosage: 90 MG (1.5 TABLETS), QD, ORAL
     Route: 048
  2. RAMIPRIL [Concomitant]
  3. NITROQUICK (GLYCERYL TRINITRATE) [Concomitant]
  4. POTASSIUM CHLORIDE [Concomitant]
  5. FUROSEMIDE [Concomitant]
  6. CARVEDILOL [Concomitant]
  7. SIMVASTATIN [Concomitant]
  8. HYDROXYZINE [Concomitant]
  9. FOLBEE /01502401/ (CYANOCOBALAMIN , FOLIC ACID, PYRIDOXINE) [Concomitant]
  10. PLAVIX [Concomitant]
  11. PRO-AIR (PROCATEROL HYDROCHLORIDE) [Concomitant]

REACTIONS (14)
  - ARRHYTHMIA [None]
  - ASPHYXIA [None]
  - CARDIAC ARREST [None]
  - CHEST PAIN [None]
  - COMA [None]
  - CYANOSIS [None]
  - ELECTROMECHANICAL DISSOCIATION [None]
  - FALL [None]
  - MYDRIASIS [None]
  - MYOCARDIAL INFARCTION [None]
  - OVERDOSE [None]
  - PALLOR [None]
  - RESPIRATORY ARREST [None]
  - UNRESPONSIVE TO STIMULI [None]
